FAERS Safety Report 13418755 (Version 1)
Quarter: 2017Q2

REPORT INFORMATION
  Report Type: Spontaneous
  Country: US (occurrence: US)
  Receive Date: 20170406
  Receipt Date: 20170406
  Transmission Date: 20170830
  Serious: Yes (Other)
  Sender: FDA-Public Use
  Company Number: US-BIOGEN-2017BI00383371

PATIENT
  Sex: Male

DRUGS (1)
  1. AVONEX [Suspect]
     Active Substance: INTERFERON BETA-1A
     Indication: MULTIPLE SCLEROSIS
     Route: 065
     Dates: start: 19990701

REACTIONS (2)
  - Blood creatinine increased [Not Recovered/Not Resolved]
  - Malignant neoplasm of thymus [Not Recovered/Not Resolved]

NARRATIVE: CASE EVENT DATE: 2016
